FAERS Safety Report 10411270 (Version 2)
Quarter: 2014Q3

REPORT INFORMATION
  Report Type: Spontaneous
  Country: US (occurrence: US)
  Receive Date: 20140826
  Receipt Date: 20140826
  Transmission Date: 20150326
  Serious: No
  Sender: FDA-Public Use
  Company Number: US-ASTRAZENECA-2014SE10563

PATIENT
  Age: 38 Year
  Sex: Female

DRUGS (1)
  1. SYMBICORT [Suspect]
     Active Substance: BUDESONIDE\FORMOTEROL FUMARATE DIHYDRATE
     Dosage: 80/4.5 MCG 2 PUFFS BID
     Route: 055
     Dates: start: 201012

REACTIONS (3)
  - Nasopharyngitis [Unknown]
  - Chest discomfort [Unknown]
  - Device misuse [Recovered/Resolved]

NARRATIVE: CASE EVENT DATE: 201402
